FAERS Safety Report 8558201-7 (Version None)
Quarter: 2012Q3

REPORT INFORMATION
  Report Type: 
  Country: None (occurrence: None)
  Receive Date: 20120727
  Receipt Date: 20120727
  Transmission Date: 20120928
  Serious: Yes (Hospitalization)
  Sender: FDA-Public Use
  Company Number: None

PATIENT
  Age: 49 Year
  Sex: Female
  Weight: 73.9363 kg

DRUGS (1)
  1. TAXOL [Suspect]
     Indication: LUNG NEOPLASM MALIGNANT
     Dosage: 88.5 MG WEEKLY IV
     Route: 042

REACTIONS (8)
  - FACE OEDEMA [None]
  - GRAND MAL CONVULSION [None]
  - FEELING HOT [None]
  - HYPERHIDROSIS [None]
  - HYPOXIA [None]
  - DYSPNOEA [None]
  - OXYGEN SATURATION DECREASED [None]
  - INFUSION RELATED REACTION [None]
